FAERS Safety Report 12387384 (Version 4)
Quarter: 2017Q3

REPORT INFORMATION
  Report Type: Spontaneous
  Country: US (occurrence: US)
  Receive Date: 20160519
  Receipt Date: 20170721
  Transmission Date: 20171127
  Serious: Yes (Death, Other)
  Sender: FDA-Public Use
  Company Number: US-JNJFOC-20160506424

PATIENT
  Age: 24 Year
  Sex: Male

DRUGS (3)
  1. LOPERAMIDE [Suspect]
     Active Substance: LOPERAMIDE
     Route: 048
  2. LOPERAMIDE [Suspect]
     Active Substance: LOPERAMIDE
     Indication: PRODUCT USED FOR UNKNOWN INDICATION
     Route: 048
  3. BUPRENORPHINE. [Concomitant]
     Active Substance: BUPRENORPHINE
     Route: 065

REACTIONS (12)
  - Pulmonary oedema [Unknown]
  - Urinary retention [Unknown]
  - Overdose [Fatal]
  - Brain oedema [Unknown]
  - Cardiotoxicity [Fatal]
  - Toxicity to various agents [Fatal]
  - Cardio-respiratory arrest [Fatal]
  - Arrhythmia [Fatal]
  - Venous thrombosis [Unknown]
  - Respiratory depression [Fatal]
  - Drug abuse [Fatal]
  - Seizure [Unknown]
